FAERS Safety Report 12127439 (Version 1)
Quarter: 2016Q1

REPORT INFORMATION
  Report Type: Spontaneous
  Country: NZ (occurrence: NZ)
  Receive Date: 20160229
  Receipt Date: 20160229
  Transmission Date: 20160526
  Serious: Yes (Other)
  Sender: FDA-Public Use
  Company Number: NZ-ACTAVIS-2016-03678

PATIENT
  Sex: Female

DRUGS (1)
  1. ARROW-SERTRALINE [Suspect]
     Active Substance: SERTRALINE HYDROCHLORIDE
     Indication: PRODUCT USED FOR UNKNOWN INDICATION
     Dosage: UNK UNK, UNKNOWN
     Route: 048

REACTIONS (1)
  - Menstruation irregular [Not Recovered/Not Resolved]
